FAERS Safety Report 4640363-5 (Version None)
Quarter: 2005Q2

REPORT INFORMATION
  Report Type: 
  Country: None (occurrence: None)
  Receive Date: 20050420
  Receipt Date: 20041028
  Transmission Date: 20051028
  Serious: No
  Sender: FDA-Public Use
  Company Number: US-GLAXOSMITHKLINE-A0531742A

PATIENT
  Age: 40 Year
  Sex: Female

DRUGS (2)
  1. ESKALITH [Suspect]
     Dosage: 450MG TWICE PER DAY
     Route: 048
     Dates: start: 20040701
  2. ZYPREXA [Concomitant]

REACTIONS (1)
  - ALOPECIA [None]
